FAERS Safety Report 4549167-5 (Version None)
Quarter: 2005Q1

REPORT INFORMATION
  Report Type: 
  Country: None (occurrence: None)
  Receive Date: 20050107
  Receipt Date: 20050107
  Transmission Date: 20050727
  Serious: Yes (Other)
  Sender: FDA-Public Use
  Company Number: None

PATIENT
  Age: 81 Year
  Sex: Male

DRUGS (14)
  1. ZOSYN [Suspect]
     Indication: INFECTION
     Dosage: 3.375 IV
     Route: 042
     Dates: start: 20040913, end: 20040921
  2. ENALAPRIL MALEATE [Concomitant]
  3. LISINOPRIL [Concomitant]
  4. FLUOXETINE HCL [Concomitant]
  5. FUROSEMIDE [Concomitant]
  6. KERLIX [Concomitant]
  7. MISOPROSTOL [Concomitant]
  8. NORTRIPTYLINE HCL [Concomitant]
  9. OXYCODONE 5MG AND ACETAMIN 325 MG [Concomitant]
  10. PIROXICAM [Concomitant]
  11. POTASSIUM CHLORIDE [Concomitant]
  12. TERAZOSIN HCL [Concomitant]
  13. PIPERACILLIN/TAZOBACTAN [Concomitant]
  14. VANCOMYCIN [Concomitant]

REACTIONS (3)
  - ASTHENIA [None]
  - CONFUSIONAL STATE [None]
  - MUSCLE TWITCHING [None]
